FAERS Safety Report 5158236-0 (Version None)
Quarter: 2006Q4

REPORT INFORMATION
  Report Type: 
  Country: None (occurrence: None)
  Receive Date: 20061121
  Receipt Date: 20061121
  Transmission Date: 20070319
  Serious: No
  Sender: FDA-Public Use
  Company Number: None

PATIENT
  Age: 3 Year
  Sex: Female

DRUGS (1)
  1. RONDEC DM COUGH SYRUP GRAPE F1 ABBOTT DURA [Suspect]
     Dosage: LAST FIVE DAYS

REACTIONS (4)
  - AMPHETAMINES POSITIVE [None]
  - CONFUSIONAL STATE [None]
  - DRUG TOXICITY [None]
  - HALLUCINATION [None]
